FAERS Safety Report 10982772 (Version 1)
Quarter: 2015Q2

REPORT INFORMATION
  Report Type: Spontaneous
  Country: CA (occurrence: CA)
  Receive Date: 20150403
  Receipt Date: 20150403
  Transmission Date: 20150821
  Serious: Yes (Other)
  Sender: FDA-Public Use
  Company Number: CA-TEVA-551323ACC

PATIENT
  Age: 69 Year
  Sex: Male
  Weight: 70 kg

DRUGS (9)
  1. PARIET [Concomitant]
     Active Substance: RABEPRAZOLE SODIUM
     Dosage: UNKNOWN FORM STRENGTH
     Route: 065
  2. SALOFALK [Concomitant]
     Active Substance: MESALAMINE
     Dosage: UNKNOWN FORM STRENGTH
     Route: 065
  3. NOVO-MYCOPHENOLATE [Suspect]
     Active Substance: MYCOPHENOLIC ACID
     Indication: PROPHYLAXIS AGAINST TRANSPLANT REJECTION
     Dosage: 500 MILLIGRAM DAILY;
     Route: 048
  4. CREON [Concomitant]
     Active Substance: PANCRELIPASE AMYLASE\PANCRELIPASE LIPASE\PANCRELIPASE PROTEASE
     Dosage: UNKNOWN FORM STRENGTH
     Route: 065
  5. FOSAMAX [Concomitant]
     Active Substance: ALENDRONATE SODIUM
     Dosage: UNKNOWN FORM STRENGTH
     Route: 065
  6. TACROLIMUS. [Concomitant]
     Active Substance: TACROLIMUS
     Dosage: UNKNOWN FORM STRENGTH
     Route: 065
  7. NOVO-MYCOPHENOLATE [Suspect]
     Active Substance: MYCOPHENOLIC ACID
     Indication: PROPHYLAXIS AGAINST TRANSPLANT REJECTION
     Dosage: 1000 MILLIGRAM DAILY;
     Route: 048
  8. INSULIN [Concomitant]
     Active Substance: INSULIN NOS
     Dosage: UNKNOWN FORM STRENGTH
     Route: 065
  9. MAGIC MOUTHWASH [Concomitant]
     Active Substance: DIPHENHYDRAMINE HYDROCHLORIDE\LIDOCAINE HYDROCHLORIDE\NYSTATIN
     Dosage: UNKNOWN FORM STRENGTH
     Route: 065

REACTIONS (5)
  - Diarrhoea [Recovered/Resolved]
  - Incontinence [Recovered/Resolved]
  - Condition aggravated [Recovered/Resolved]
  - Product substitution issue [Recovered/Resolved]
  - Lichen planus [Recovered/Resolved]
